FAERS Safety Report 20263121 (Version 2)
Quarter: 2022Q2

REPORT INFORMATION
  Report Type: Spontaneous
  Country: CA (occurrence: CA)
  Receive Date: 20211231
  Receipt Date: 20220419
  Transmission Date: 20220721
  Serious: Yes (Life-Threatening, Other)
  Sender: FDA-Public Use
  Company Number: CA-SA-SAC20211230000270

PATIENT
  Age: 16 Year
  Sex: Male
  Weight: 70 kg

DRUGS (7)
  1. ANTI-THYMOCYTE GLOBULIN (RABBIT) NOS [Suspect]
     Active Substance: LAPINE T-LYMPHOCYTE IMMUNE GLOBULIN
     Indication: Prophylaxis against transplant rejection
     Dosage: 140 MG, QD
     Route: 042
     Dates: start: 20200914, end: 20200914
  2. BUSULFAN [Suspect]
     Active Substance: BUSULFAN
  3. CYCLOPHOSPHAMIDE [Concomitant]
     Active Substance: CYCLOPHOSPHAMIDE
     Dosage: 3460 MG,2 HOUR INFUSION DAILY
     Dates: start: 20200912, end: 20200916
  4. URSODIOL [Concomitant]
     Active Substance: URSODIOL
     Dosage: 500 UNK, TID
     Route: 048
     Dates: start: 20200914, end: 20200918
  5. CYCLOSPORINE [Concomitant]
     Active Substance: CYCLOSPORINE
     Dosage: 275 MG, QD
     Route: 048
     Dates: start: 20200914, end: 20200916
  6. MESNA [Concomitant]
     Active Substance: MESNA
     Dosage: 1730 MG,15 MIN INFUSION DAILY
     Route: 041
  7. VALACYCLOVIR [Concomitant]
     Active Substance: VALACYCLOVIR HYDROCHLORIDE
     Dosage: 500 MG, BID
     Dates: start: 20200914, end: 20200919

REACTIONS (8)
  - Chills [Recovered/Resolved]
  - Confusional state [Recovered/Resolved]
  - Headache [Recovered/Resolved]
  - Hypernatraemia [Recovered/Resolved]
  - Hypotension [Recovered/Resolved]
  - Pyrexia [Recovered/Resolved]
  - Seizure [Recovered/Resolved]
  - Vomiting [Recovered/Resolved]
